FAERS Safety Report 19350859 (Version 1)
Quarter: 2021Q2

REPORT INFORMATION
  Report Type: Spontaneous
  Country: PL (occurrence: PL)
  Receive Date: 20210531
  Receipt Date: 20210531
  Transmission Date: 20210717
  Serious: No
  Sender: FDA-Public Use
  Company Number: PL-ALKEM LABORATORIES LIMITED-PL-ALKEM-2020-05569

PATIENT
  Age: 72 Year
  Sex: Female

DRUGS (2)
  1. NIMODIPINE. [Suspect]
     Active Substance: NIMODIPINE
     Indication: PROPHYLAXIS
     Dosage: 1 MILLIGRAM, Q 1HOUR
     Route: 042
  2. NIMODIPINE. [Suspect]
     Active Substance: NIMODIPINE
     Indication: CEREBRAL VASOCONSTRICTION
     Dosage: UNK
     Route: 048

REACTIONS (2)
  - Stress cardiomyopathy [Recovered/Resolved]
  - Blood pressure decreased [Recovered/Resolved]
